FAERS Safety Report 17015008 (Version 1)
Quarter: 2019Q4

REPORT INFORMATION
  Report Type: Spontaneous
  Country: GB (occurrence: GB)
  Receive Date: 20191111
  Receipt Date: 20191111
  Transmission Date: 20200122
  Serious: Yes (Hospitalization)
  Sender: FDA-Public Use
  Company Number: GB-ACCORD-160393

PATIENT
  Age: 85 Year
  Sex: Male
  Weight: 76 kg

DRUGS (12)
  1. FOLIC ACID. [Concomitant]
     Active Substance: FOLIC ACID
     Route: 048
  2. METFORMIN [Concomitant]
     Active Substance: METFORMIN HYDROCHLORIDE
     Dosage: CHANGED TO 1G TWICE DAILY ON 12/1/18 IN HOSPITAL
     Route: 048
  3. LACTULOSE. [Concomitant]
     Active Substance: LACTULOSE
     Dosage: TAKES APPROXIMATELY THREE TIMES PER WEEK
     Route: 048
  4. DORZOLAMIDE [Concomitant]
     Active Substance: DORZOLAMIDE
     Dosage: BOTH EYES
     Route: 061
  5. PARACETAMOL [Concomitant]
     Active Substance: ACETAMINOPHEN
     Indication: PAIN
     Dosage: 4 TIMES DAILY
     Route: 048
  6. FUROSEMIDE. [Concomitant]
     Active Substance: FUROSEMIDE
     Route: 048
  7. PIOGLITAZONE/PIOGLITAZONE HYDROCHLORIDE [Suspect]
     Active Substance: PIOGLITAZONE HYDROCHLORIDE
     Indication: TYPE 2 DIABETES MELLITUS
     Dosage: MORNING
     Route: 048
  8. HYPROMELLOSE/HYPROMELLOSE PHTHALATE [Concomitant]
     Indication: DRY EYE
     Dosage: BOTH EYES
     Route: 061
  9. GAVISCON ADVANCE [Concomitant]
     Active Substance: POTASSIUM BICARBONATE\SODIUM ALGINATE
     Indication: DYSPEPSIA
     Dosage: 4 TIMES DAILY
     Route: 048
  10. TUBILUX PHARMA LATANOPROST AND TIMOLOL [Concomitant]
     Dosage: BOTH EYES?LATONOPROST 50MCG/ML, TIMOLOL 5MG/ML
     Route: 061
  11. BISOPROLOL [Concomitant]
     Active Substance: BISOPROLOL
     Route: 048
  12. GLICLAZIDE [Concomitant]
     Active Substance: GLICLAZIDE
     Dosage: CHANGED TO 80 MG BD ON 12/1/18 IN HOSPITAL
     Route: 048

REACTIONS (3)
  - Liver function test abnormal [Recovering/Resolving]
  - Vomiting [Unknown]
  - Abdominal pain upper [Recovered/Resolved]

NARRATIVE: CASE EVENT DATE: 20180111
